FAERS Safety Report 24834791 (Version 4)
Quarter: 2025Q1

REPORT INFORMATION
  Report Type: Spontaneous
  Country: IE (occurrence: IE)
  Receive Date: 20250113
  Receipt Date: 20250207
  Transmission Date: 20250409
  Serious: Yes (Other)
  Sender: MYLAN
  Company Number: IE-MYLANLABS-2025M1002162

PATIENT
  Sex: Male

DRUGS (1)
  1. CLOZARIL [Suspect]
     Active Substance: CLOZAPINE
     Indication: Schizophrenia
     Route: 048
     Dates: start: 20241212

REACTIONS (5)
  - Neutropenia [Recovered/Resolved]
  - Haemoglobin decreased [Recovered/Resolved]
  - White blood cell count decreased [Recovered/Resolved]
  - Eosinophil count decreased [Not Recovered/Not Resolved]
  - Off label use [Unknown]

NARRATIVE: CASE EVENT DATE: 20241212
